FAERS Safety Report 20764384 (Version 2)
Quarter: 2022Q2

REPORT INFORMATION
  Report Type: Spontaneous
  Country: US (occurrence: US)
  Receive Date: 20220428
  Receipt Date: 20220509
  Transmission Date: 20220721
  Serious: Yes (Other)
  Sender: FDA-Public Use
  Company Number: US-TEVA-2022-US-2030228

PATIENT
  Age: 79 Year
  Sex: Female

DRUGS (6)
  1. CARBOPLATIN [Suspect]
     Active Substance: CARBOPLATIN
     Indication: Ovarian cancer
     Dosage: INITIALLY, 4 CYCLES
     Route: 065
     Dates: start: 2014
  2. CARBOPLATIN [Suspect]
     Active Substance: CARBOPLATIN
     Indication: Malignant pleural effusion
     Dosage: TWO MORE CYCLES
     Route: 065
     Dates: start: 2014
  3. CARBOPLATIN [Suspect]
     Active Substance: CARBOPLATIN
     Dosage: FIVE CYCLES
     Route: 065
     Dates: start: 2015
  4. PACLITAXEL [Suspect]
     Active Substance: PACLITAXEL
     Indication: Ovarian cancer
     Dosage: INITIALLY, 4 CYCLES
     Route: 065
     Dates: start: 2014
  5. PACLITAXEL [Suspect]
     Active Substance: PACLITAXEL
     Indication: Malignant pleural effusion
     Dosage: TWO MORE CYCLES
     Route: 065
     Dates: start: 2014
  6. PACLITAXEL [Suspect]
     Active Substance: PACLITAXEL
     Dosage: FIVE CYCLES
     Route: 065
     Dates: start: 2015

REACTIONS (1)
  - Myelosuppression [Unknown]
